FAERS Safety Report 6841263-2 (Version None)
Quarter: 2010Q3

REPORT INFORMATION
  Report Type: 
  Country: None (occurrence: None)
  Receive Date: 20100714
  Receipt Date: 20070629
  Transmission Date: 20110219
  Serious: No
  Sender: FDA-Public Use
  Company Number: US-PFIZER INC-2007055141

PATIENT
  Sex: Female
  Weight: 75 kg

DRUGS (11)
  1. CHANTIX [Suspect]
     Indication: SMOKING CESSATION THERAPY
     Dates: start: 20070501
  2. ACTOS [Concomitant]
  3. ASPIRINE [Concomitant]
  4. BENICAR [Concomitant]
  5. CRESTOR [Concomitant]
  6. CYMBALTA [Concomitant]
  7. PLAVIX [Concomitant]
  8. TRICOR [Concomitant]
  9. ZETIA [Concomitant]
  10. VITAMINS [Concomitant]
  11. FISH OIL [Concomitant]

REACTIONS (3)
  - ABDOMINAL DISCOMFORT [None]
  - FATIGUE [None]
  - VOMITING [None]
